FAERS Safety Report 4700618-2 (Version None)
Quarter: 2005Q2

REPORT INFORMATION
  Report Type: 
  Country: None (occurrence: None)
  Receive Date: 20050627
  Receipt Date: 20050613
  Transmission Date: 20051028
  Serious: Yes (Other)
  Sender: FDA-Public Use
  Company Number: 2005090001

PATIENT
  Age: 49 Year
  Sex: Male

DRUGS (5)
  1. LIPITOR [Suspect]
     Indication: HYPERLIPIDAEMIA
     Dosage: ORAL
     Route: 048
     Dates: start: 20050603
  2. UNICON (THEOPHYLLINE) [Concomitant]
  3. ONON (PRANLUKAST) [Concomitant]
  4. FLUTIDE DISKUS (FLUTICASONE PROPIONATE0 [Concomitant]
  5. SULTANOL (SALBUTAMOL) [Concomitant]

REACTIONS (1)
  - RASH [None]
